FAERS Safety Report 20054588 (Version 7)
Quarter: 2022Q3

REPORT INFORMATION
  Report Type: Report from Study
  Country: CA (occurrence: CA)
  Receive Date: 20211110
  Receipt Date: 20220913
  Transmission Date: 20221026
  Serious: Yes (Other)
  Sender: FDA-Public Use
  Company Number: CA-OTSUKA-2021_037685

PATIENT
  Sex: Male

DRUGS (3)
  1. CEDAZURIDINE\DECITABINE [Suspect]
     Active Substance: CEDAZURIDINE\DECITABINE
     Indication: Myelodysplastic syndrome
     Dosage: 5 TABLETS PER CYCLE
     Route: 048
     Dates: start: 20210927
  2. CEDAZURIDINE\DECITABINE [Suspect]
     Active Substance: CEDAZURIDINE\DECITABINE
     Dosage: 2 PILL/CYCLE
     Route: 065
  3. CEDAZURIDINE\DECITABINE [Suspect]
     Active Substance: CEDAZURIDINE\DECITABINE
     Dosage: 3 PILLS/CYCLE
     Route: 065
     Dates: start: 20220328, end: 20220708

REACTIONS (8)
  - Platelet transfusion [Unknown]
  - Transfusion [Unknown]
  - Leukaemia [Unknown]
  - Pneumonia [Unknown]
  - Sepsis [Unknown]
  - Platelet count decreased [Unknown]
  - Therapy interrupted [Unknown]
  - Product use issue [Unknown]
